FAERS Safety Report 10072146 (Version 1)
Quarter: 2014Q2

REPORT INFORMATION
  Report Type: Spontaneous
  Country: US (occurrence: None)
  Receive Date: 20140409
  Receipt Date: 20140409
  Transmission Date: 20141212
  Serious: Yes (Life-Threatening)
  Sender: FDA-Public Use
  Company Number: 2275261

PATIENT
  Sex: 0

DRUGS (1)
  1. LIDOCAINE HCL [Suspect]
     Indication: ENDOTRACHEAL INTUBATION
     Dates: start: 201403

REACTIONS (3)
  - Obstructive airways disorder [None]
  - Product friable [None]
  - Wrong technique in drug usage process [None]
